FAERS Safety Report 21715462 (Version 1)
Quarter: 2022Q4

REPORT INFORMATION
  Report Type: Spontaneous
  Country: US (occurrence: US)
  Receive Date: 20221212
  Receipt Date: 20221212
  Transmission Date: 20230113
  Serious: No
  Sender: FDA-Public Use
  Company Number: US-ALLERGAN-2212216US

PATIENT
  Sex: Female

DRUGS (2)
  1. BYSTOLIC [Suspect]
     Active Substance: NEBIVOLOL HYDROCHLORIDE
     Indication: Product used for unknown indication
     Dosage: 5 MG
  2. BYSTOLIC [Suspect]
     Active Substance: NEBIVOLOL HYDROCHLORIDE
     Dosage: 2.5 UNK

REACTIONS (2)
  - Wrong technique in product usage process [Unknown]
  - Dizziness [Recovered/Resolved]
